FAERS Safety Report 15684483 (Version 2)
Quarter: 2018Q4

REPORT INFORMATION
  Report Type: Spontaneous
  Country: US (occurrence: US)
  Receive Date: 20181204
  Receipt Date: 20181213
  Transmission Date: 20190205
  Serious: Yes (Other)
  Sender: FDA-Public Use
  Company Number: US-GLAXOSMITHKLINE-US2018GSK215654

PATIENT
  Age: 40 Year
  Sex: Female

DRUGS (1)
  1. BENLYSTA [Suspect]
     Active Substance: BELIMUMAB
     Indication: SYSTEMIC LUPUS ERYTHEMATOSUS

REACTIONS (12)
  - Systemic lupus erythematosus [Unknown]
  - Memory impairment [Unknown]
  - Crying [Unknown]
  - Fatigue [Unknown]
  - Hyperhidrosis [Unknown]
  - Pain [Unknown]
  - Dyspnoea [Unknown]
  - Drug ineffective [Unknown]
  - Nausea [Unknown]
  - Uterine leiomyoma embolisation [Unknown]
  - Depression [Unknown]
  - Dehydration [Unknown]
